FAERS Safety Report 4651998-8 (Version None)
Quarter: 2005Q2

REPORT INFORMATION
  Report Type: 
  Country: None (occurrence: None)
  Receive Date: 20050404
  Receipt Date: 20050208
  Transmission Date: 20051028
  Serious: Yes (Hospitalization, Other)
  Sender: FDA-Public Use
  Company Number: US_0411108366

PATIENT
  Age: 83 Year
  Sex: Female

DRUGS (1)
  1. CYMBALTA [Suspect]
     Dates: start: 20041001, end: 20041001

REACTIONS (15)
  - BRADYCARDIA [None]
  - DEHYDRATION [None]
  - DIARRHOEA [None]
  - ELECTROLYTE IMBALANCE [None]
  - ENTEROCOLITIS [None]
  - GASTROENTERITIS [None]
  - HAEMATOCHEZIA [None]
  - MYOCARDIAL INFARCTION [None]
  - NAUSEA [None]
  - ORTHOSTATIC HYPOTENSION [None]
  - PEPTIC ULCER [None]
  - PLEURAL EFFUSION [None]
  - THROMBOCYTOPENIA [None]
  - URINARY TRACT INFECTION [None]
  - VOMITING [None]
